FAERS Safety Report 18808848 (Version 1)
Quarter: 2021Q1

REPORT INFORMATION
  Report Type: Spontaneous
  Country: DE (occurrence: DE)
  Receive Date: 20210129
  Receipt Date: 20210129
  Transmission Date: 20210419
  Serious: Yes (Hospitalization)
  Sender: FDA-Public Use
  Company Number: DE-PFIZER INC-2021065682

PATIENT
  Age: 27 Year
  Sex: Male

DRUGS (1)
  1. SILDENAFIL CITRATE. [Suspect]
     Active Substance: SILDENAFIL CITRATE
     Dosage: UNK (INTAKE ON 30OCT2020 AND ON 31OCT2020)
     Dates: start: 20201030, end: 20201031

REACTIONS (6)
  - Chills [Unknown]
  - Syncope [Unknown]
  - Glomerular filtration rate decreased [Unknown]
  - Tremor [Unknown]
  - Dizziness [Unknown]
  - Vision blurred [Unknown]

NARRATIVE: CASE EVENT DATE: 20201102
